FAERS Safety Report 12670665 (Version 2)
Quarter: 2016Q3

REPORT INFORMATION
  Report Type: Spontaneous
  Country: FR (occurrence: FR)
  Receive Date: 20160822
  Receipt Date: 20160907
  Transmission Date: 20161109
  Serious: Yes (Hospitalization)
  Sender: FDA-Public Use
  Company Number: FR-ROCHE-1815139

PATIENT
  Age: 69 Year
  Sex: Male

DRUGS (38)
  1. CORTANCYL [Concomitant]
     Active Substance: PREDNISONE
     Indication: RENAL TRANSPLANT
     Route: 048
     Dates: start: 20160229, end: 20160306
  2. NEORAL [Concomitant]
     Active Substance: CYCLOSPORINE
     Indication: RENAL TRANSPLANT
     Route: 048
     Dates: start: 20160229
  3. LANTUS [Concomitant]
     Active Substance: INSULIN GLARGINE
     Dosage: 14 IU/DAY
     Route: 065
     Dates: start: 20160229
  4. INEXIUM [Concomitant]
     Active Substance: ESOMEPRAZOLE
     Dosage: 20 MG/DAY
     Route: 065
     Dates: start: 20160229
  5. INEXIUM [Concomitant]
     Active Substance: ESOMEPRAZOLE
     Route: 065
  6. TAHOR [Concomitant]
     Active Substance: ATORVASTATIN CALCIUM
     Dosage: 10 MG/DAY
     Route: 065
     Dates: start: 20160402
  7. TRIATEC (FRANCE) [Concomitant]
     Active Substance: RAMIPRIL
     Dosage: 1.25 MG/DAY
     Route: 065
     Dates: start: 20160229
  8. BISOCE [Concomitant]
     Active Substance: BISOPROLOL
     Dosage: 5 MG/DAY
     Route: 065
     Dates: start: 20160229
  9. BISOCE [Concomitant]
     Active Substance: BISOPROLOL
     Dosage: 5 MG/DAY
     Route: 065
     Dates: start: 20160402
  10. KEPPRA [Concomitant]
     Active Substance: LEVETIRACETAM
     Dosage: 500 MG/DAY
     Route: 065
     Dates: start: 20160402
  11. CORTANCYL [Concomitant]
     Active Substance: PREDNISONE
     Dosage: DOSE INCREASED TO 15MG/DAY
     Route: 048
     Dates: start: 20160315
  12. NEORAL [Concomitant]
     Active Substance: CYCLOSPORINE
     Route: 065
     Dates: start: 20160402
  13. ROVALCYTE [Concomitant]
     Active Substance: VALGANCICLOVIR HYDROCHLORIDE
     Dosage: 450-MG TABLET
     Route: 048
     Dates: start: 201510
  14. NOVORAPID [Concomitant]
     Active Substance: INSULIN ASPART
  15. KEPPRA [Concomitant]
     Active Substance: LEVETIRACETAM
     Dosage: 500 MG/DAY
     Route: 065
     Dates: start: 20160229
  16. DOLIPRANE [Concomitant]
     Active Substance: ACETAMINOPHEN
     Dosage: WHEN NEEDED
     Route: 065
  17. CELLCEPT [Suspect]
     Active Substance: MYCOPHENOLATE MOFETIL\MYCOPHENOLATE MOFETIL HYDROCHLORIDE
     Indication: RENAL TRANSPLANT
     Dosage: 500-MG TABLET
     Route: 048
  18. CORTANCYL [Concomitant]
     Active Substance: PREDNISONE
     Route: 048
     Dates: start: 20160402
  19. LASILIX [Concomitant]
     Active Substance: FUROSEMIDE
     Dosage: 165 MG/DAY AT LUNCHTIME
     Route: 065
     Dates: start: 20160229
  20. TRIATEC (FRANCE) [Concomitant]
     Active Substance: RAMIPRIL
     Dosage: 1.25 MG/DAY
     Route: 065
     Dates: start: 20160402
  21. KARDEGIC [Concomitant]
     Active Substance: ASPIRIN LYSINE
     Dosage: 75 MG/DAY
     Route: 065
     Dates: start: 20160229
  22. ORAMORPH [Concomitant]
     Active Substance: MORPHINE SULFATE
  23. ASPEGIC [Concomitant]
     Active Substance: ASPIRIN DL-LYSINE
  24. BACTRIM [Concomitant]
     Active Substance: SULFAMETHOXAZOLE\TRIMETHOPRIM
     Route: 048
     Dates: start: 20160229, end: 20160306
  25. BACTRIM [Concomitant]
     Active Substance: SULFAMETHOXAZOLE\TRIMETHOPRIM
     Route: 048
     Dates: start: 20160402
  26. OROCAL (FRANCE) [Concomitant]
     Dosage: 500 MG TWICE PER DAY
     Route: 065
     Dates: start: 20160229
  27. LASILIX [Concomitant]
     Active Substance: FUROSEMIDE
     Route: 065
     Dates: start: 20160402
  28. GALVUS [Concomitant]
     Active Substance: VILDAGLIPTIN
     Dosage: 50 MG/DAY
     Route: 065
     Dates: start: 20160229
  29. KARDEGIC [Concomitant]
     Active Substance: ASPIRIN LYSINE
     Dosage: 75 MG/DAY
     Route: 065
     Dates: start: 20160402
  30. OXYCODONE [Concomitant]
     Active Substance: OXYCODONE
  31. CELLCEPT [Suspect]
     Active Substance: MYCOPHENOLATE MOFETIL\MYCOPHENOLATE MOFETIL HYDROCHLORIDE
     Route: 048
     Dates: start: 20160306, end: 20160321
  32. ROVALCYTE [Concomitant]
     Active Substance: VALGANCICLOVIR HYDROCHLORIDE
     Dosage: 450-MG TABLET
     Route: 048
     Dates: start: 20160229
  33. ROVALCYTE [Concomitant]
     Active Substance: VALGANCICLOVIR HYDROCHLORIDE
     Dosage: 450-MG TABLET
     Route: 048
     Dates: start: 20160402
  34. ARANESP [Concomitant]
     Active Substance: DARBEPOETIN ALFA
     Route: 065
     Dates: start: 20160402
  35. LANTUS [Concomitant]
     Active Substance: INSULIN GLARGINE
     Dosage: 14 IU/DAY
     Route: 065
     Dates: start: 20160402
  36. OROCAL (FRANCE) [Concomitant]
     Dosage: 500 MG TWICE PER DAY
     Route: 065
     Dates: start: 20160402
  37. TAHOR [Concomitant]
     Active Substance: ATORVASTATIN CALCIUM
     Dosage: 10 MG/DAY
     Route: 065
     Dates: start: 20160229
  38. DUPHALAC (FRANCE) [Concomitant]
     Active Substance: LACTULOSE
     Dosage: 2 DOSE FORMS TWICE PER DAY
     Route: 065
     Dates: start: 20160402

REACTIONS (3)
  - Mouth ulceration [Recovered/Resolved]
  - Lymphopenia [Not Recovered/Not Resolved]
  - Oral pain [Recovered/Resolved]
